FAERS Safety Report 23620678 (Version 2)
Quarter: 2024Q1

REPORT INFORMATION
  Report Type: Spontaneous
  Country: DE (occurrence: DE)
  Receive Date: 20240312
  Receipt Date: 20240327
  Transmission Date: 20240410
  Serious: No
  Sender: FDA-Public Use
  Company Number: DE-ALKEM LABORATORIES LIMITED-DE-ALKEM-2024-03908

PATIENT
  Age: 8 Year

DRUGS (1)
  1. MYCOPHENOLATE MOFETIL [Suspect]
     Active Substance: MYCOPHENOLATE MOFETIL
     Indication: Morphoea
     Dosage: 40 MILLIGRAM/KILOGRAM, QD (EVERY 1 DAY)
     Route: 065

REACTIONS (1)
  - Therapy non-responder [Unknown]
